FAERS Safety Report 21523349 (Version 1)
Quarter: 2022Q4

REPORT INFORMATION
  Report Type: Spontaneous
  Country: US (occurrence: US)
  Receive Date: 20221029
  Receipt Date: 20221029
  Transmission Date: 20230112
  Serious: Yes (Hospitalization, Other)
  Sender: FDA-Public Use
  Company Number: US-SANOFI-01340416

PATIENT
  Sex: Male

DRUGS (6)
  1. DUPIXENT [Suspect]
     Active Substance: DUPILUMAB
     Indication: Eczema
     Dosage: 300 MG, QOW
     Dates: start: 2019
  2. BACTRIM [Concomitant]
     Active Substance: SULFAMETHOXAZOLE\TRIMETHOPRIM
  3. AMIODARONE [Concomitant]
     Active Substance: AMIODARONE
  4. METOPROLOL [Concomitant]
     Active Substance: METOPROLOL
  5. ALBUTEROL [Concomitant]
     Active Substance: ALBUTEROL
  6. ELIQUIS [Concomitant]
     Active Substance: APIXABAN

REACTIONS (4)
  - Pneumonia [Unknown]
  - Hypoxia [Unknown]
  - Eczema [Unknown]
  - Conjunctivitis [Unknown]
